FAERS Safety Report 8608140 (Version 4)
Quarter: 2014Q2

REPORT INFORMATION
  Report Type: Spontaneous
  Country: US (occurrence: US)
  Receive Date: 20120611
  Receipt Date: 20140415
  Transmission Date: 20141212
  Serious: Yes (Disabling, Other)
  Sender: FDA-Public Use
  Company Number: US-ASTRAZENECA-2012SE35357

PATIENT
  Age: 68 Year
  Sex: Female
  Weight: 72.6 kg

DRUGS (23)
  1. NEXIUM [Suspect]
     Indication: GASTROOESOPHAGEAL REFLUX DISEASE
     Route: 048
     Dates: start: 2003
  2. NEXIUM [Suspect]
     Indication: GASTROOESOPHAGEAL REFLUX DISEASE
     Route: 048
     Dates: start: 20070625
  3. NEXIUM [Suspect]
     Indication: GASTROOESOPHAGEAL REFLUX DISEASE
     Route: 048
     Dates: start: 20120517
  4. PEPCID [Concomitant]
     Dates: start: 2002
  5. TUMS [Concomitant]
     Dates: start: 2002
  6. ROLAIDS [Concomitant]
     Dates: start: 2002
  7. COREG [Concomitant]
     Indication: PALPITATIONS
  8. BABY ASPIRIN [Concomitant]
  9. KETOPROFEN [Concomitant]
     Route: 048
     Dates: start: 20071130
  10. LORCET PLUS [Concomitant]
     Indication: PAIN
     Dosage: 7.5 - 650 MG 1 TABLET BY ORAL ROUT EVERY 4 HOURS AS NEEDED
     Route: 048
     Dates: start: 20070925
  11. LOVENOX [Concomitant]
     Dates: start: 20070802
  12. MEPERGAN FORTIS [Concomitant]
     Indication: PAIN
     Dosage: ONE BY MOUTH Q6 HRS
     Dates: start: 20071005
  13. NAPROXEN [Concomitant]
  14. STEROIDS [Concomitant]
  15. INDOCINE [Concomitant]
     Route: 048
  16. DEXAMETHASONE [Concomitant]
  17. LYRICA [Concomitant]
  18. ALPRAZOLAM [Concomitant]
  19. MELOXICAM [Concomitant]
  20. METOCLOPRAMIDE [Concomitant]
  21. OMEPRAZOLE [Concomitant]
  22. CARVEDILOL [Concomitant]
  23. DOXYCYCLINE HYCLATE [Concomitant]

REACTIONS (11)
  - Arthropathy [Unknown]
  - Femur fracture [Unknown]
  - Osteoporosis [Unknown]
  - Multiple fractures [Unknown]
  - Bone density abnormal [Unknown]
  - Osteoarthritis [Unknown]
  - Osteopenia [Unknown]
  - Fatigue [Unknown]
  - Muscular weakness [Unknown]
  - Arthritis [Unknown]
  - Exostosis [Unknown]
